FAERS Safety Report 8135654-X (Version None)
Quarter: 2012Q1

REPORT INFORMATION
  Report Type: 
  Country: None (occurrence: None)
  Receive Date: 20120214
  Receipt Date: 20120208
  Transmission Date: 20120608
  Serious: Yes (Other)
  Sender: FDA-Public Use
  Company Number: PHHY2012ES011000

PATIENT
  Age: 76 Year
  Sex: Female

DRUGS (8)
  1. ENALAPRIL [Suspect]
     Dosage: UNK
     Dates: end: 20101029
  2. ASPIRIN [Concomitant]
     Dosage: 100 MG, QD
     Route: 048
  3. BISOPROLOL FUMARATE [Concomitant]
     Route: 048
  4. CO-VALS [Suspect]
     Indication: HYPERTENSION
     Dosage: UNK
     Dates: start: 20080101, end: 20100701
  5. ACREL [Concomitant]
     Route: 048
  6. CALCIUM CARBONATE [Concomitant]
     Route: 048
  7. OMEPRAZOLE [Concomitant]
     Route: 048
  8. PRAVASTATIN [Concomitant]
     Route: 048

REACTIONS (2)
  - RHINITIS [None]
  - ANOSMIA [None]
